FAERS Safety Report 9087387 (Version 1)
Quarter: 2013Q1

REPORT INFORMATION
  Report Type: Report from Study
  Country: US (occurrence: US)
  Receive Date: 20130201
  Receipt Date: 20130201
  Transmission Date: 20140127
  Serious: No
  Sender: FDA-Public Use
  Company Number: US-ABBOTT-12P-163-1024244-00

PATIENT
  Sex: Female
  Weight: 108.96 kg

DRUGS (5)
  1. HUMIRA [Suspect]
     Indication: RHEUMATOID ARTHRITIS
     Route: 058
     Dates: end: 201207
  2. HUMIRA [Suspect]
     Route: 058
     Dates: start: 201208
  3. VENTOLIN [Concomitant]
     Indication: ASTHMA
  4. ADVAIR [Concomitant]
     Indication: ASTHMA
  5. SINGULAIR [Concomitant]
     Indication: ASTHMA

REACTIONS (1)
  - Herpes zoster [Recovered/Resolved]
